FAERS Safety Report 6782293-9 (Version None)
Quarter: 2010Q2

REPORT INFORMATION
  Report Type: 
  Country: None (occurrence: None)
  Receive Date: 20100621
  Receipt Date: 20100614
  Transmission Date: 20101027
  Serious: Yes (Other)
  Sender: FDA-Public Use
  Company Number: FR-BRISTOL-MYERS SQUIBB COMPANY-14845861

PATIENT
  Age: 73 Year
  Sex: Male
  Weight: 63 kg

DRUGS (2)
  1. REYATAZ [Suspect]
     Indication: ACQUIRED IMMUNODEFICIENCY SYNDROME
     Dates: start: 20050716
  2. ISENTRESS [Suspect]
     Indication: ACQUIRED IMMUNODEFICIENCY SYNDROME
     Dosage: TABS
     Dates: start: 20090429

REACTIONS (1)
  - LIPODYSTROPHY ACQUIRED [None]
